FAERS Safety Report 14112248 (Version 1)
Quarter: 2017Q4

REPORT INFORMATION
  Report Type: Report from Study
  Country: US (occurrence: US)
  Receive Date: 20171020
  Receipt Date: 20171020
  Transmission Date: 20180321
  Serious: Yes (Death, Hospitalization)
  Sender: FDA-Public Use
  Company Number: US-ACTELION-A-NJ2015-124989

PATIENT
  Age: 62 Year
  Sex: Female
  Weight: 45.81 kg

DRUGS (5)
  1. METHOTREXATE. [Suspect]
     Active Substance: METHOTREXATE
     Indication: PRODUCT USED FOR UNKNOWN INDICATION
     Route: 065
  2. VELETRI [Suspect]
     Active Substance: EPOPROSTENOL
     Indication: PULMONARY HYPERTENSION
     Dosage: 19.5 NG/KG, PER MIN
     Route: 042
  3. NIFEDIPINE. [Concomitant]
     Active Substance: NIFEDIPINE
  4. REVATIO [Concomitant]
     Active Substance: SILDENAFIL CITRATE
  5. COUMADIN [Concomitant]
     Active Substance: WARFARIN SODIUM

REACTIONS (6)
  - Adverse drug reaction [Unknown]
  - Death [Fatal]
  - Rheumatoid arthritis [Unknown]
  - Arthralgia [Unknown]
  - Nausea [Unknown]
  - Diarrhoea [Unknown]
